FAERS Safety Report 5520814-4 (Version None)
Quarter: 2007Q4

REPORT INFORMATION
  Report Type: 
  Country: None (occurrence: None)
  Receive Date: 20071119
  Receipt Date: 20071109
  Transmission Date: 20080405
  Serious: Yes (Hospitalization)
  Sender: FDA-Public Use
  Company Number: B0490305A

PATIENT
  Age: 58 Year
  Sex: Female

DRUGS (1)
  1. NIQUITIN CQ CLEAR 21MG [Suspect]
     Route: 062
     Dates: start: 20070301, end: 20070912

REACTIONS (2)
  - MYOCARDIAL INFARCTION [None]
  - NICOTINE DEPENDENCE [None]
